FAERS Safety Report 7387903-3 (Version None)
Quarter: 2011Q2

REPORT INFORMATION
  Report Type: 
  Country: None (occurrence: None)
  Receive Date: 20110401
  Receipt Date: 20110319
  Transmission Date: 20111010
  Serious: Yes (Hospitalization, Other)
  Sender: FDA-Public Use
  Company Number: US-PAR PHARMACEUTICAL, INC-2011SCPR002801

PATIENT
  Age: 33 Year
  Sex: Male

DRUGS (6)
  1. DIAZEPAM [Suspect]
     Indication: ADJUSTMENT DISORDER
  2. DIAZEPAM [Suspect]
     Indication: DEPRESSED MOOD
     Dosage: UNK
     Route: 065
  3. SERTRALINE HYDROCHLORIDE [Suspect]
     Indication: ANXIETY
  4. FLUOXETINE [Suspect]
     Indication: ADJUSTMENT DISORDER
     Dosage: 80 MG, QD
     Route: 048
  5. FLUOXETINE [Suspect]
     Indication: DEPRESSED MOOD
     Dosage: 20 MG, QD
     Route: 048
  6. SERTRALINE HYDROCHLORIDE [Suspect]
     Indication: DEPRESSION
     Dosage: 100 MG, QD
     Route: 065

REACTIONS (3)
  - SEROTONIN SYNDROME [None]
  - HAEMATEMESIS [None]
  - DRUG ADMINISTRATION ERROR [None]
